FAERS Safety Report 4424316-8 (Version None)
Quarter: 2004Q3

REPORT INFORMATION
  Report Type: 
  Country: None (occurrence: None)
  Receive Date: 20040809
  Receipt Date: 20040730
  Transmission Date: 20050211
  Serious: Yes (Hospitalization)
  Sender: FDA-Public Use
  Company Number: 2004226240US

PATIENT
  Age: 80 Year
  Sex: Male
  Weight: 81.6 kg

DRUGS (11)
  1. ZYVOX [Suspect]
     Indication: STAPHYLOCOCCAL INFECTION
     Dosage: 600 MG, BID
     Dates: start: 20031101
  2. ZYVOX [Suspect]
     Indication: STAPHYLOCOCCAL INFECTION
     Dosage: 600 MG, BID
     Dates: start: 20040309
  3. MODURETIC 5-50 [Concomitant]
  4. KERLONE [Concomitant]
  5. LIPITOR [Concomitant]
  6. PRILOSEC [Concomitant]
  7. COUMADIN [Concomitant]
  8. CLONAZEPAM [Concomitant]
  9. RESTORIL [Concomitant]
  10. VITAMIN B-12 [Concomitant]
  11. BENADRYL [Concomitant]

REACTIONS (4)
  - BLOOD DISORDER [None]
  - NEUROPATHY PERIPHERAL [None]
  - RASH [None]
  - URINARY RETENTION [None]
